FAERS Safety Report 4418007-7 (Version None)
Quarter: 2004Q3

REPORT INFORMATION
  Report Type: 
  Country: None (occurrence: None)
  Receive Date: 20040803
  Receipt Date: 20040721
  Transmission Date: 20050211
  Serious: Yes (Death)
  Sender: FDA-Public Use
  Company Number: 2004045402

PATIENT
  Age: 93 Year
  Sex: Female
  Weight: 40 kg

DRUGS (6)
  1. ZITHROMAX [Suspect]
     Indication: BRONCHOPNEUMONIA
     Dosage: 500 MG (500 MG, 1 IN 1 D), ORAL
     Route: 048
     Dates: start: 20040705, end: 20040705
  2. LOSARTAN POTASSIUM [Concomitant]
  3. TERBINAFINE HCL [Concomitant]
  4. ENSURE (AMINO ACIDS NOS, MINERALS NOS, VITAMINS NOS) [Concomitant]
  5. LEVOFLOXACIN [Concomitant]
  6. SINEMET [Concomitant]

REACTIONS (5)
  - BODY TEMPERATURE INCREASED [None]
  - MEDICATION ERROR [None]
  - PRODUCTIVE COUGH [None]
  - SHOCK [None]
  - SPUTUM RETENTION [None]
